FAERS Safety Report 5306445-X (Version None)
Quarter: 2007Q2

REPORT INFORMATION
  Report Type: 
  Country: None (occurrence: None)
  Receive Date: 20070424
  Receipt Date: 20070418
  Transmission Date: 20071010
  Serious: Yes (Disabling)
  Sender: FDA-Public Use
  Company Number: US-MERCK-0704USA02880

PATIENT
  Age: 63 Year
  Sex: Female

DRUGS (4)
  1. ZETIA [Suspect]
     Indication: BLOOD CHOLESTEROL
     Route: 048
     Dates: start: 20061113, end: 20070330
  2. LIPITOR [Concomitant]
     Route: 065
  3. METOPROLOL [Concomitant]
     Route: 065
  4. ASPIRIN [Concomitant]
     Route: 065

REACTIONS (6)
  - ERYTHEMA OF EYELID [None]
  - EYELID EXFOLIATION [None]
  - EYELID OEDEMA [None]
  - EYELIDS PRURITUS [None]
  - PAIN [None]
  - URTICARIA [None]
